FAERS Safety Report 4954540-7 (Version None)
Quarter: 2006Q1

REPORT INFORMATION
  Report Type: 
  Country: None (occurrence: None)
  Receive Date: 20060322
  Receipt Date: 20060314
  Transmission Date: 20060701
  Serious: Yes (Other)
  Sender: FDA-Public Use
  Company Number: 2006035982

PATIENT
  Age: 35 Year
  Sex: Male

DRUGS (4)
  1. MEDROL [Suspect]
     Indication: INTERVERTEBRAL DISC OPERATION
     Dosage: 48 MG (16 MG, 3 IN 1 D), ORAL
     Route: 048
     Dates: start: 20050130, end: 20050208
  2. CORTANCYL (PREDNISONE) [Suspect]
     Indication: INTERVERTEBRAL DISC OPERATION
     Dosage: 60 MG, ORAL
     Route: 048
     Dates: start: 20050122, end: 20050101
  3. ZOLOFT [Concomitant]
  4. STREASM (ETIFOXINE) [Concomitant]

REACTIONS (1)
  - OSTEONECROSIS [None]
